FAERS Safety Report 23235116 (Version 3)
Quarter: 2024Q1

REPORT INFORMATION
  Report Type: Spontaneous
  Country: US (occurrence: US)
  Receive Date: 20231128
  Receipt Date: 20240109
  Transmission Date: 20240410
  Serious: No
  Sender: FDA-Public Use
  Company Number: US-PFIZER INC-202300405011

PATIENT
  Age: 77 Year
  Sex: Male
  Weight: 93.424 kg

DRUGS (1)
  1. PAXLOVID [Suspect]
     Active Substance: NIRMATRELVIR\RITONAVIR
     Indication: COVID-19 treatment
     Dosage: 10 MG, 2X/DAY (3 TABLETS)
     Dates: start: 20231113, end: 20231117

REACTIONS (3)
  - COVID-19 [Recovered/Resolved]
  - Disease recurrence [Recovered/Resolved]
  - Incorrect dose administered [Unknown]
